FAERS Safety Report 6993588-8 (Version None)
Quarter: 2010Q3

REPORT INFORMATION
  Report Type: 
  Country: None (occurrence: None)
  Receive Date: 20100917
  Receipt Date: 20100908
  Transmission Date: 20110219
  Serious: Yes (Other)
  Sender: FDA-Public Use
  Company Number: PHHY2010JP59833

PATIENT

DRUGS (1)
  1. AREDIA [Suspect]

REACTIONS (8)
  - CATARACT [None]
  - DISORDER OF GLOBE [None]
  - GLAUCOMA [None]
  - NECROSIS [None]
  - OSTEONECROSIS [None]
  - RETINOPATHY [None]
  - ULCERATIVE KERATITIS [None]
  - VITREOUS HAEMORRHAGE [None]
